FAERS Safety Report 5675537-8 (Version None)
Quarter: 2008Q2

REPORT INFORMATION
  Report Type: 
  Country: None (occurrence: None)
  Receive Date: 20080311
  Receipt Date: 20070926
  Transmission Date: 20081010
  Serious: Yes (Other)
  Sender: FDA-Public Use
  Company Number: PHEH2007US12887

PATIENT

DRUGS (1)
  1. TRILEPTAL [Suspect]
     Dosage: 450 MG; 900 MG

REACTIONS (1)
  - HYPERTENSION [None]
